FAERS Safety Report 7203882-3 (Version None)
Quarter: 2010Q4

REPORT INFORMATION
  Report Type: 
  Country: None (occurrence: None)
  Receive Date: 20101230
  Receipt Date: 20101209
  Transmission Date: 20110411
  Serious: No
  Sender: FDA-Public Use
  Company Number: US-B.I. PHARMACEUTICALS,INC./RIDGEFIELD-2010-BP-14172BP

PATIENT
  Sex: Female

DRUGS (12)
  1. PRADAXA [Suspect]
     Indication: ANTICOAGULANT THERAPY
     Dosage: 300 MG
     Route: 048
     Dates: start: 20101101
  2. PRADAXA [Suspect]
     Indication: ATRIAL FIBRILLATION
  3. SYNTHROID [Concomitant]
     Indication: HYPOTHYROIDISM
  4. CALCIUM [Concomitant]
     Indication: PROPHYLAXIS
  5. METOPROLOL [Concomitant]
     Indication: HYPERTENSION
  6. LASIX [Concomitant]
     Indication: FLUID RETENTION
  7. LISINOPRIL [Concomitant]
     Indication: HYPERTENSION
  8. KLOR-CON [Concomitant]
     Indication: PROPHYLAXIS
  9. VITAMIN D [Concomitant]
     Indication: PROPHYLAXIS
  10. ASPIRIN [Concomitant]
     Indication: PROPHYLAXIS
  11. INSULIN [Concomitant]
     Indication: DIABETES MELLITUS
  12. LORAZEPAM [Concomitant]
     Indication: SLEEP DISORDER

REACTIONS (1)
  - SKIN DISCOLOURATION [None]
